FAERS Safety Report 19654990 (Version 1)
Quarter: 2021Q3

REPORT INFORMATION
  Report Type: Spontaneous
  Country: US (occurrence: US)
  Receive Date: 20210804
  Receipt Date: 20210804
  Transmission Date: 20211014
  Serious: No
  Sender: FDA-Public Use
  Company Number: US-GLENMARK PHARMACEUTICALS-2020GMK050919

PATIENT

DRUGS (1)
  1. ALCLOMETASONE DIPROPIONATE. [Suspect]
     Active Substance: ALCLOMETASONE DIPROPIONATE
     Indication: NEUROPATHY PERIPHERAL
     Dosage: UNK, QID (4 TIMES A DAY)
     Route: 061

REACTIONS (2)
  - Product use in unapproved indication [Unknown]
  - Product use issue [Unknown]
